FAERS Safety Report 15880930 (Version 6)
Quarter: 2020Q1

REPORT INFORMATION
  Report Type: Report from Study
  Country: NL (occurrence: NL)
  Receive Date: 20190128
  Receipt Date: 20200103
  Transmission Date: 20200409
  Serious: Yes (Death, Life-Threatening, Hospitalization)
  Sender: FDA-Public Use
  Company Number: NL-MYLANLABS-2019M1006903

PATIENT
  Age: 69 Year
  Sex: Male

DRUGS (10)
  1. PREDNISOLONE. [Suspect]
     Active Substance: PREDNISOLONE
     Indication: RHEUMATOID ARTHRITIS
     Dosage: 7.5MG, 2X/D
     Route: 048
     Dates: start: 20180116, end: 20180831
  2. FENPROCOUMON [Concomitant]
     Active Substance: PHENPROCOUMON
     Dosage: UNK
  3. FOLIUMZUUR [Concomitant]
     Active Substance: FOLIC ACID
     Dosage: 10 MILLIGRAM, QD (1DD10MG)
  4. OMEPRAZOL                          /00661201/ [Concomitant]
     Active Substance: OMEPRAZOLE
     Dosage: 40 MILLIGRAM, QD (1DD1)
  5. ALENDRONINEZUUR [Concomitant]
     Active Substance: ALENDRONIC ACID
     Dosage: 70 MILLIGRAM, QW (1XPER WEEK)
  6. CITALOPRAM [Concomitant]
     Active Substance: CITALOPRAM HYDROBROMIDE
     Dosage: 20 MILLIGRAM, QD (1DD20MG)
  7. DICLOFENAC [Concomitant]
     Active Substance: DICLOFENAC
     Dosage: 75 MILLIGRAM, BID (2DD75MG)
  8. TOCILIZUMAB. [Suspect]
     Active Substance: TOCILIZUMAB
     Indication: RHEUMATOID ARTHRITIS
     Dosage: 162MG, 1X/W
     Route: 058
     Dates: start: 20160914, end: 20180612
  9. CALCIUM CARBONATE W/COLECALCIFEROL [Concomitant]
     Active Substance: CALCIUM CARBONATE\CHOLECALCIFEROL
     Dosage: 1DD1
  10. METHOTREXAAT                       /00113801/ [Suspect]
     Active Substance: METHOTREXATE SODIUM
     Indication: RHEUMATOID ARTHRITIS
     Dosage: 25MG, 1X/W
     Route: 048
     Dates: start: 20180116, end: 20180612

REACTIONS (2)
  - Progressive multifocal leukoencephalopathy [Recovered/Resolved]
  - JC virus CSF test positive [Unknown]

NARRATIVE: CASE EVENT DATE: 20180612
